FAERS Safety Report 4318554-2 (Version None)
Quarter: 2004Q1

REPORT INFORMATION
  Report Type: 
  Country: None (occurrence: None)
  Receive Date: 20040318
  Receipt Date: 20040114
  Transmission Date: 20041129
  Serious: Yes (Hospitalization)
  Sender: FDA-Public Use
  Company Number: PHEH2004US00921

PATIENT
  Age: 79 Year
  Sex: Female

DRUGS (16)
  1. ZELNORM [Suspect]
     Indication: IRRITABLE BOWEL SYNDROME
     Dosage: 6 MG, BID
     Route: 048
     Dates: end: 20040215
  2. LIBRIUM [Concomitant]
  3. ATENOLOL [Concomitant]
  4. LEVBID [Concomitant]
  5. CELEBREX [Concomitant]
  6. PRILOSEC [Concomitant]
  7. CARDIZEM [Concomitant]
  8. ZOCOR [Concomitant]
  9. SYNTHROID [Concomitant]
  10. IMDUR [Concomitant]
  11. ALDACTONE [Concomitant]
  12. BIOMEX [Concomitant]
  13. ALTACE [Concomitant]
  14. TIKOSYN [Concomitant]
  15. XOPENEX [Concomitant]
  16. PULMICORT [Concomitant]

REACTIONS (9)
  - ADVERSE EVENT [None]
  - ARRHYTHMIA [None]
  - DIZZINESS [None]
  - HEADACHE [None]
  - MEMORY IMPAIRMENT [None]
  - MENTAL DISORDER [None]
  - NERVOUSNESS [None]
  - THROMBOENDARTERECTOMY [None]
  - THROMBOSIS [None]
